FAERS Safety Report 15395979 (Version 1)
Quarter: 2018Q3

REPORT INFORMATION
  Report Type: Spontaneous
  Country: US (occurrence: US)
  Receive Date: 20180912
  Receipt Date: 20180912
  Transmission Date: 20181010
  Serious: Yes (Hospitalization, Disabling)
  Sender: FDA-Public Use
  Company Number: None

PATIENT
  Age: 25 Year
  Sex: Male
  Weight: 90.72 kg

DRUGS (7)
  1. GLUTAMINE [Concomitant]
     Active Substance: GLUTAMINE
  2. ACCUTANE [Suspect]
     Active Substance: ISOTRETINOIN
     Indication: ACNE
     Dosage: ?          QUANTITY:45 CAPSULE(S);?
     Route: 048
     Dates: start: 20010803, end: 20020103
  3. L?CITRULINE [Concomitant]
  4. CREATINE [Concomitant]
     Active Substance: CREATINE
  5. WHEY PROTEIN [Concomitant]
     Active Substance: WHEY
  6. MULTI?VITAMINS [Concomitant]
  7. AGMATINE [Concomitant]

REACTIONS (2)
  - Back pain [None]
  - Pain in extremity [None]

NARRATIVE: CASE EVENT DATE: 20010921
